FAERS Safety Report 5292602-8 (Version None)
Quarter: 2007Q2

REPORT INFORMATION
  Report Type: 
  Country: None (occurrence: None)
  Receive Date: 20070404
  Receipt Date: 20070321
  Transmission Date: 20071010
  Serious: Yes (Disabling)
  Sender: FDA-Public Use
  Company Number: 2217-124

PATIENT
  Age: 53 Year
  Sex: Female

DRUGS (2)
  1. TRIAMCINOLONE ACETONIDE [Suspect]
     Indication: RETINAL ARTERY OCCLUSION
     Dosage: 4 MG UNK EY
  2. TRIAMCINOLONE ACETONIDE [Suspect]
     Indication: RETINAL VEIN OCCLUSION
     Dosage: 4 MG UNK EY

REACTIONS (5)
  - INTRAOCULAR PRESSURE INCREASED [None]
  - NECROTISING RETINITIS [None]
  - PUPILLARY REFLEX IMPAIRED [None]
  - RETINITIS [None]
  - TOXOPLASMOSIS [None]
